FAERS Safety Report 14174861 (Version 1)
Quarter: 2017Q4

REPORT INFORMATION
  Report Type: Spontaneous
  Country: TR (occurrence: TR)
  Receive Date: 20171109
  Receipt Date: 20171109
  Transmission Date: 20180321
  Serious: Yes (Life-Threatening, Other)
  Sender: FDA-Public Use
  Company Number: TR-AMGEN-TURSP2017167474

PATIENT
  Age: 73 Year
  Sex: Female
  Weight: 68 kg

DRUGS (6)
  1. ZEMPLAR [Concomitant]
     Active Substance: PARICALCITOL
     Dosage: 1 ML, UNK
     Route: 042
  2. BEMIKS C [Concomitant]
  3. MIMPARA [Suspect]
     Active Substance: CINACALCET HYDROCHLORIDE
     Indication: HYPERPARATHYROIDISM
     Dosage: UNK, QD
     Route: 048
     Dates: start: 20170904
  4. VISCAP [Suspect]
     Active Substance: CINACALCET HYDROCHLORIDE
     Indication: HYPERCALCAEMIA
     Dosage: UNK UNK, QD
     Route: 048
     Dates: start: 20170904
  5. ANTI FOSFAT CC [Concomitant]
     Route: 048
  6. FOLBIOL [Concomitant]
     Active Substance: FOLIC ACID

REACTIONS (4)
  - Anxiety [Recovered/Resolved]
  - Suicidal ideation [None]
  - Boredom [Recovered/Resolved]
  - Choking sensation [Recovered/Resolved]

NARRATIVE: CASE EVENT DATE: 20170904
